FAERS Safety Report 9780537 (Version 4)
Quarter: 2015Q1

REPORT INFORMATION
  Report Type: Report from Study
  Country: FR (occurrence: FR)
  Receive Date: 20131224
  Receipt Date: 20150113
  Transmission Date: 20150721
  Serious: Yes (Hospitalization, Other)
  Sender: FDA-Public Use
  Company Number: FR-ROCHE-1160657

PATIENT
  Age: 58 Year
  Sex: Female

DRUGS (14)
  1. RITUXIMAB [Suspect]
     Active Substance: RITUXIMAB
     Indication: RHEUMATOID ARTHRITIS
     Route: 042
     Dates: start: 20061006, end: 20061020
  2. ABATACEPT [Concomitant]
     Active Substance: ABATACEPT
  3. LYRICA [Concomitant]
     Active Substance: PREGABALIN
  4. TOCILIZUMAB [Suspect]
     Active Substance: TOCILIZUMAB
     Route: 042
  5. VITAMIN B12 [Concomitant]
     Active Substance: CYANOCOBALAMIN
  6. OXYCONTIN [Concomitant]
     Active Substance: OXYCODONE HYDROCHLORIDE
  7. OXYNORM [Concomitant]
     Active Substance: OXYCODONE HYDROCHLORIDE
  8. FOSAVANCE [Concomitant]
     Active Substance: ALENDRONATE SODIUM\CHOLECALCIFEROL
  9. OROCAL (FRANCE) [Concomitant]
  10. MYOLASTAN [Concomitant]
     Active Substance: TETRAZEPAM
  11. CORTANCYL [Concomitant]
     Active Substance: PREDNISONE
     Route: 065
  12. ARAVA [Concomitant]
     Active Substance: LEFLUNOMIDE
  13. TOCILIZUMAB [Suspect]
     Active Substance: TOCILIZUMAB
     Indication: RHEUMATOID ARTHRITIS
     Route: 042
     Dates: start: 200910
  14. METHOTREXATE [Concomitant]
     Active Substance: METHOTREXATE
     Route: 065

REACTIONS (22)
  - Embolism [Unknown]
  - Influenza like illness [Recovered/Resolved]
  - Infection [Unknown]
  - Hypogammaglobulinaemia [Not Recovered/Not Resolved]
  - Intervertebral disc compression [Unknown]
  - Vertebroplasty [Unknown]
  - Cementoplasty [Unknown]
  - Intervertebral disc protrusion [Unknown]
  - Depression [Not Recovered/Not Resolved]
  - Joint arthroplasty [Recovered/Resolved]
  - Neutropenia [Not Recovered/Not Resolved]
  - Nasopharyngitis [Recovered/Resolved]
  - Escherichia sepsis [Recovered/Resolved]
  - Lung disorder [Unknown]
  - Sciatica [Not Recovered/Not Resolved]
  - Device dislocation [Recovered/Resolved]
  - Paradoxical drug reaction [Unknown]
  - Shoulder arthroplasty [Unknown]
  - Chronic kidney disease [Not Recovered/Not Resolved]
  - Normochromic normocytic anaemia [Recovered/Resolved]
  - Gastric ulcer [Not Recovered/Not Resolved]
  - Cystitis [Recovered/Resolved]

NARRATIVE: CASE EVENT DATE: 200707
